FAERS Safety Report 5873689-8 (Version None)
Quarter: 2008Q3

REPORT INFORMATION
  Report Type: 
  Country: None (occurrence: None)
  Receive Date: 20080908
  Receipt Date: 20080902
  Transmission Date: 20090109
  Serious: Yes (Death)
  Sender: FDA-Public Use
  Company Number: B0532783A

PATIENT
  Age: 53 Year
  Sex: Female

DRUGS (5)
  1. PAXIL [Suspect]
     Indication: DRUG USE FOR UNKNOWN INDICATION
     Dosage: 30MG PER DAY
     Route: 048
     Dates: start: 20080701
  2. PAXIL [Suspect]
     Route: 048
     Dates: start: 20080801
  3. RESTAS [Concomitant]
     Dosage: 2MG TWICE PER DAY
     Route: 048
  4. EVAMYL [Concomitant]
     Dosage: 1MG PER DAY
     Route: 048
  5. TETRAMIDE [Concomitant]
     Dosage: 10MG PER DAY
     Route: 048

REACTIONS (2)
  - COMPLETED SUICIDE [None]
  - OVERDOSE [None]
